FAERS Safety Report 17109542 (Version 1)
Quarter: 2019Q4

REPORT INFORMATION
  Report Type: Spontaneous
  Country: US (occurrence: US)
  Receive Date: 20191204
  Receipt Date: 20191204
  Transmission Date: 20200122
  Serious: Yes (Other)
  Sender: FDA-Public Use
  Company Number: US-MELINTA THERAPEUTICS, INC-US-MLNT-19-00208

PATIENT
  Age: 45 Year
  Sex: Female

DRUGS (2)
  1. VABOMERE [Suspect]
     Active Substance: MEROPENEM\VABORBACTAM
     Indication: KLEBSIELLA BACTERAEMIA
     Dosage: NOT PROVIDED.
     Route: 041
  2. GENTAMICIN. [Suspect]
     Active Substance: GENTAMICIN
     Indication: KLEBSIELLA BACTERAEMIA
     Dosage: NOT PROVIDED
     Route: 042

REACTIONS (4)
  - Abdominal wall abscess [Unknown]
  - Off label use [Unknown]
  - Minimum inhibitory concentration increased [Unknown]
  - Drug ineffective for unapproved indication [Unknown]
